FAERS Safety Report 18485477 (Version 1)
Quarter: 2020Q4

REPORT INFORMATION
  Report Type: Spontaneous
  Country: US (occurrence: US)
  Receive Date: 20201110
  Receipt Date: 20201110
  Transmission Date: 20210114
  Serious: Yes (Life-Threatening, Other)
  Sender: FDA-Public Use
  Company Number: None

PATIENT
  Age: 35 Year
  Sex: Female
  Weight: 85.5 kg

DRUGS (1)
  1. DULOXETINE DELAYED-RELEASE CAPSULES, USP 30MG (CYMBALTA ) [Suspect]
     Active Substance: DULOXETINE HYDROCHLORIDE
     Indication: NEURALGIA
     Dosage: ?          QUANTITY:2 CAPSULE(S);?
     Route: 048
     Dates: start: 20191130, end: 20200604

REACTIONS (12)
  - Fatigue [None]
  - Tremor [None]
  - Musculoskeletal stiffness [None]
  - Temperature intolerance [None]
  - Suicidal ideation [None]
  - Heart rate increased [None]
  - Withdrawal syndrome [None]
  - Emotional disorder [None]
  - Aspartate aminotransferase increased [None]
  - Myalgia [None]
  - Dizziness [None]
  - Paraesthesia [None]

NARRATIVE: CASE EVENT DATE: 20200413
